FAERS Safety Report 7322531-7 (Version None)
Quarter: 2011Q1

REPORT INFORMATION
  Report Type: 
  Country: None (occurrence: None)
  Receive Date: 20110215
  Receipt Date: 20100520
  Transmission Date: 20110831
  Serious: Yes (Hospitalization, Disabling, Other)
  Sender: FDA-Public Use
  Company Number: 012557

PATIENT
  Age: 25 Year
  Sex: Male

DRUGS (2)
  1. ROTIGOTINE (ROTIGOTINE) [Suspect]
     Dosage: 4 MG QD TRANSDERMAL
     Route: 062
  2. FLUOXETINE [Concomitant]

REACTIONS (5)
  - DERMATITIS CONTACT [None]
  - DOPAMINE DYSREGULATION SYNDROME [None]
  - IMPAIRED WORK ABILITY [None]
  - INCORRECT DOSE ADMINISTERED [None]
  - APPLICATION SITE RASH [None]
